FAERS Safety Report 9228906 (Version 1)
Quarter: 2013Q2

REPORT INFORMATION
  Report Type: Spontaneous
  Country: US (occurrence: US)
  Receive Date: 20130412
  Receipt Date: 20130412
  Transmission Date: 20140414
  Serious: No
  Sender: FDA-Public Use
  Company Number: US-PFIZER INC-2013112436

PATIENT
  Age: 67 Year
  Sex: Female
  Weight: 47.62 kg

DRUGS (5)
  1. ADVIL [Suspect]
     Indication: BACK PAIN
     Dosage: 200MG FOUR CAPSULES IN A DAY
  2. ADVIL [Suspect]
     Dosage: 4 OF 200MG IN MORNING AND 4 OF 200MG IN EVENING
     Dates: start: 2013, end: 2013
  3. ADVIL [Suspect]
     Dosage: 1200 MG, WITHIN 2 HOURS
     Dates: start: 20130408
  4. NEXIUM [Suspect]
     Indication: GASTROOESOPHAGEAL REFLUX DISEASE
     Dosage: 40 MG, 2X/DAY
  5. NEXIUM [Suspect]
     Dosage: 40 MG, 1X/DAY

REACTIONS (4)
  - Overdose [Unknown]
  - Dizziness [Unknown]
  - Nervousness [Unknown]
  - Drug ineffective [Unknown]
